FAERS Safety Report 8002702-7 (Version None)
Quarter: 2011Q4

REPORT INFORMATION
  Report Type: 
  Country: None (occurrence: None)
  Receive Date: 20111222
  Receipt Date: 20111214
  Transmission Date: 20120403
  Serious: Yes (Other)
  Sender: FDA-Public Use
  Company Number: JP-MERCK-1111USA01684

PATIENT
  Age: 62 Year
  Sex: Female

DRUGS (5)
  1. CYANOCOBALAMIN [Suspect]
     Route: 048
  2. LOXONIN [Suspect]
     Route: 048
  3. NORVASC [Suspect]
     Route: 048
  4. HALCION [Concomitant]
     Indication: ARTHRALGIA
     Route: 048
  5. FOSAMAX [Suspect]
     Indication: OSTEOPOROSIS
     Route: 048
     Dates: start: 20070105, end: 20090905

REACTIONS (1)
  - OSTEOMYELITIS [None]
